FAERS Safety Report 8152877-4 (Version None)
Quarter: 2012Q1

REPORT INFORMATION
  Report Type: 
  Country: None (occurrence: None)
  Receive Date: 20120221
  Receipt Date: 20120216
  Transmission Date: 20120608
  Serious: Yes (Life-Threatening, Hospitalization, Other)
  Sender: FDA-Public Use
  Company Number: IL-SANOFI-AVENTIS-2011SA078958

PATIENT
  Age: 62 Year
  Sex: Male

DRUGS (63)
  1. LANTUS [Concomitant]
  2. ROCEPHIN [Concomitant]
     Dates: start: 20110929, end: 20111006
  3. OMEPRADEX [Concomitant]
     Dates: start: 20111002
  4. PROSCAR [Concomitant]
     Dates: start: 20111019, end: 20111025
  5. MONOCARD [Concomitant]
     Dates: start: 20111024, end: 20111027
  6. AEROVENT [Concomitant]
     Dates: start: 20110929
  7. ALDOSTERONE [Concomitant]
     Dosage: FIRST REPORTED ON 27 MARCH 2011
  8. PLAVIX [Suspect]
     Route: 065
     Dates: start: 20110327
  9. ZINACEF /UNK/ [Concomitant]
     Dates: start: 20110923, end: 20110929
  10. RULID [Concomitant]
     Dates: start: 20110922, end: 20111010
  11. FUROSEMIDE [Concomitant]
     Dates: start: 20110929, end: 20110929
  12. DOPAMINE HYDROCHLORIDE [Concomitant]
     Dates: start: 20110929, end: 20110929
  13. DOPAMINE HYDROCHLORIDE [Concomitant]
     Dates: start: 20110930, end: 20110930
  14. BETA BLOCKING AGENTS [Concomitant]
     Dosage: FIRST REPORTED ON 04 JULY 2011
  15. ALDOSTERONE [Concomitant]
     Dosage: FIRST REPORTED ON 04 JULY 2011
  16. ACE INHIBITOR NOS [Concomitant]
     Dosage: FIRST REPORTED ON 04 JULY 2011
  17. PLAVIX [Suspect]
     Route: 065
     Dates: start: 20111128
  18. APIDRA [Concomitant]
  19. FERROCAL [Concomitant]
     Dates: start: 20111021
  20. ISOSORBIDE DINITRATE [Concomitant]
     Dates: start: 20110927, end: 20110929
  21. BISOPROLOL FUMARATE [Concomitant]
  22. BETA BLOCKING AGENTS [Concomitant]
     Dosage: FIRST REPORTED ON 27 MARCH 2011
  23. PLATELET AGGREGATION INHIBITORS [Concomitant]
     Dosage: FIRST REPORTED ON 04 JULY 2011
  24. ALL OTHER THERAPEUTIC PRODUCTS [Concomitant]
     Dosage: FIRST REPORTED ON 22 DECEMBER 2010
  25. PLAVIX [Suspect]
     Route: 065
     Dates: start: 20110704
  26. ZANTAC [Concomitant]
     Dates: start: 20110926, end: 20110929
  27. PANTOPRAZOLE [Concomitant]
     Dates: start: 20111004, end: 20111015
  28. FUROSEMIDE [Concomitant]
     Dates: start: 20110928, end: 20110928
  29. POTASSIUM CHLORIDE [Concomitant]
     Dates: start: 20111015, end: 20111018
  30. SIMVASTATIN [Concomitant]
     Dosage: FIRST REPORTED ON 27 MARCH 2011
     Dates: end: 20110925
  31. LIPITOR [Concomitant]
     Dates: start: 20110926
  32. ANTITHROMBOTIC AGENTS [Concomitant]
     Dosage: FIRST REPORTED ON22 DEC 2010
  33. DIURETICS [Concomitant]
     Dosage: FIRST REPORTED ON 04 JULY 2011
  34. PLATELET AGGREGATION INHIBITORS [Concomitant]
     Dosage: FIRST REPORTED ON 27 MARCH 2011
  35. HMG COA REDUCTASE INHIBITORS [Concomitant]
     Dosage: FIRST REPORTED ON 22 DECEMBER 2010
  36. FUROSEMIDE [Concomitant]
     Dates: start: 20110925, end: 20110926
  37. DOPAMINE HYDROCHLORIDE [Concomitant]
     Dates: start: 20110926, end: 20110926
  38. RAMIPRIL [Concomitant]
  39. ANTITHROMBOTIC AGENTS [Concomitant]
     Dosage: FIRST REPORTED ON 04 JULY 2011
  40. DIURETICS [Concomitant]
     Dosage: FIRST REPORTED ON 22 DECEMBER2010
  41. DIURETICS [Concomitant]
     Dosage: FIRST REPORTED ON 27 MARCH 2011
  42. ALDOSTERONE [Concomitant]
     Dosage: FIRST REPORTED ON 22 DECEMBER 2010
  43. PLATELET AGGREGATION INHIBITORS [Concomitant]
     Dosage: FIRST REPORTED ON 22 DECEMBER2010
  44. ASPIRIN [Concomitant]
     Dates: start: 20110924
  45. POTASSIUM CHLORIDE [Concomitant]
     Dates: start: 20110927, end: 20110927
  46. SIMVASTATIN [Concomitant]
     Dosage: FIRST REPORTED ON 22 DECEMBER 2010
     Dates: end: 20110925
  47. BEZALIP [Concomitant]
     Dates: start: 20110926
  48. FLIXOTIDE ^GLAXO^ [Concomitant]
     Dates: start: 20110929, end: 20111102
  49. PLAVIX [Suspect]
     Route: 065
     Dates: start: 20101222
  50. CIPRODEX [Concomitant]
     Dates: start: 20111024, end: 20111102
  51. AMIKACIN [Concomitant]
     Dates: start: 20111021, end: 20111023
  52. CEFUROXIME [Concomitant]
     Dates: start: 20111007, end: 20111010
  53. ZANTAC [Concomitant]
     Dates: start: 20110930, end: 20110930
  54. SIMVASTATIN [Concomitant]
     Dosage: FIRST REPORTED ON 04 JULY 2011
     Dates: end: 20110925
  55. PANTOPRAZOLE [Concomitant]
     Dates: start: 20110930, end: 20110930
  56. FUROSEMIDE [Concomitant]
     Dates: start: 20110923, end: 20110923
  57. FUROSEMIDE [Concomitant]
     Dates: start: 20110924, end: 20110924
  58. FUROSEMIDE [Concomitant]
     Dates: start: 20110927, end: 20110927
  59. FUROSEMIDE [Concomitant]
     Dates: start: 20111002
  60. DOPAMINE HYDROCHLORIDE [Concomitant]
     Dates: start: 20110927, end: 20110927
  61. BETA BLOCKING AGENTS [Concomitant]
     Dosage: FIRST REPORTED ON 22 DECEMBER2010
  62. ACE INHIBITOR NOS [Concomitant]
     Dosage: FIRST REPORTED ON 22 DECEMBER 2010
  63. ACE INHIBITOR NOS [Concomitant]
     Dosage: FIRST REPORTED ON 27 MARCH 2011

REACTIONS (12)
  - PYREXIA [None]
  - BLOOD UREA INCREASED [None]
  - MELAENA [None]
  - HAEMOPTYSIS [None]
  - PNEUMONIA [None]
  - ACUTE RESPIRATORY FAILURE [None]
  - DYSPNOEA [None]
  - SEPSIS [None]
  - RENAL FAILURE [None]
  - GASTROINTESTINAL HAEMORRHAGE [None]
  - HAEMOGLOBIN DECREASED [None]
  - CARDIAC FAILURE CONGESTIVE [None]
